FAERS Safety Report 10890437 (Version 1)
Quarter: 2015Q1

REPORT INFORMATION
  Report Type: Spontaneous
  Country: US (occurrence: US)
  Receive Date: 20150305
  Receipt Date: 20150305
  Transmission Date: 20150721
  Serious: Yes (Death)
  Sender: FDA-Public Use
  Company Number: US-JNJFOC-20150302019

PATIENT
  Age: 51 Year
  Sex: Female

DRUGS (1)
  1. BENADRYL [Suspect]
     Active Substance: DIPHENHYDRAMINE HYDROCHLORIDE
     Indication: COMPLETED SUICIDE
     Route: 048

REACTIONS (3)
  - Intentional overdose [Fatal]
  - Product label issue [Unknown]
  - Completed suicide [Fatal]

NARRATIVE: CASE EVENT DATE: 1998
